FAERS Safety Report 4851336-1 (Version None)
Quarter: 2005Q4

REPORT INFORMATION
  Report Type: 
  Country: None (occurrence: None)
  Receive Date: 20051207
  Receipt Date: 20051124
  Transmission Date: 20060501
  Serious: Yes (Hospitalization, Disabling, Other)
  Sender: FDA-Public Use
  Company Number: HQWYE628607OCT04

PATIENT
  Age: 61 Year
  Sex: Female

DRUGS (5)
  1. NEORAL [Suspect]
     Indication: PROPHYLAXIS AGAINST TRANSPLANT REJECTION
     Dosage: 125 MG 1X PER 1 DAY; ORAL
     Route: 048
     Dates: start: 20010501
  2. CELLCEPT (MYCOPHENOLAGE MOFETIL) [Concomitant]
  3. DELTASONE [Concomitant]
  4. OMEPRAZOLE [Concomitant]
  5. MADOPAR (BENSERAZIDE HYDROCHLORIDE/LEVODOPA) [Concomitant]

REACTIONS (7)
  - BACK PAIN [None]
  - BLOOD CREATININE INCREASED [None]
  - BLOOD UREA INCREASED [None]
  - HAEMATOCRIT DECREASED [None]
  - HAEMOGLOBIN DECREASED [None]
  - METASTASIS [None]
  - SPINAL DISORDER [None]
